FAERS Safety Report 5442018-6 (Version None)
Quarter: 2007Q3

REPORT INFORMATION
  Report Type: 
  Country: None (occurrence: None)
  Receive Date: 20070829
  Receipt Date: 20070823
  Transmission Date: 20080115
  Serious: Yes (Hospitalization)
  Sender: FDA-Public Use
  Company Number: 2007S1000157

PATIENT
  Age: 28 Year
  Sex: Female
  Weight: 93.8946 kg

DRUGS (9)
  1. INOMAX [Suspect]
     Indication: SICKLE CELL ANAEMIA
     Dosage: 80 PPM;CONT;INH; 40 PPM;CONT;INH; 6ML;CONT;INH
     Route: 055
     Dates: start: 20070808, end: 20070809
  2. INOMAX [Suspect]
     Indication: SICKLE CELL ANAEMIA
     Dosage: 80 PPM;CONT;INH; 40 PPM;CONT;INH; 6ML;CONT;INH
     Route: 055
     Dates: start: 20070809, end: 20070809
  3. INOMAX [Suspect]
     Indication: SICKLE CELL ANAEMIA
     Dosage: 80 PPM;CONT;INH; 40 PPM;CONT;INH; 6ML;CONT;INH
     Route: 055
     Dates: start: 20070809, end: 20070811
  4. FOLIC ACID [Concomitant]
  5. DILAUDID [Concomitant]
  6. OXYCONTIN [Concomitant]
  7. LOVENOX [Concomitant]
  8. PHENERGAN ^AVENTIS PHARMA^ [Concomitant]
  9. BENADRYL ^ACHE^ [Concomitant]

REACTIONS (7)
  - ACUTE CHEST SYNDROME [None]
  - HAEMOGLOBIN DECREASED [None]
  - LUNG DISORDER [None]
  - MIGRAINE [None]
  - OPHTHALMOLOGICAL EXAMINATION ABNORMAL [None]
  - PULMONARY CONGESTION [None]
  - PYREXIA [None]
